FAERS Safety Report 16910906 (Version 3)
Quarter: 2019Q4

REPORT INFORMATION
  Report Type: Spontaneous
  Country: US (occurrence: US)
  Receive Date: 20191012
  Receipt Date: 20191203
  Transmission Date: 20200122
  Serious: No
  Sender: FDA-Public Use
  Company Number: US-009507513-1910USA000334

PATIENT
  Sex: Female
  Weight: 74.49 kg

DRUGS (1)
  1. NEXPLANON [Suspect]
     Active Substance: ETONOGESTREL
     Dosage: 1 DOSAGE FORM, EVERY 3 YEARS
     Route: 059
     Dates: start: 20170410, end: 2019

REACTIONS (2)
  - Device breakage [Recovered/Resolved]
  - Metrorrhagia [Unknown]

NARRATIVE: CASE EVENT DATE: 2019
